FAERS Safety Report 10039646 (Version 5)
Quarter: 2014Q2

REPORT INFORMATION
  Report Type: Report from Study
  Country: NL (occurrence: NL)
  Receive Date: 20140326
  Receipt Date: 20140528
  Transmission Date: 20141212
  Serious: Yes (Hospitalization)
  Sender: FDA-Public Use
  Company Number: NL-JNJFOC-20140306067

PATIENT
  Age: 76 Year
  Sex: Male
  Weight: 70 kg

DRUGS (16)
  1. ABIRATERONE ACETATE [Suspect]
     Indication: PROSTATE CANCER
     Route: 048
  2. ABIRATERONE ACETATE [Suspect]
     Indication: PROSTATE CANCER
     Route: 048
     Dates: start: 20130604, end: 20131025
  3. ALENDRONIC ACID [Concomitant]
     Route: 065
  4. CALCICHEW [Concomitant]
     Dosage: ^1DD2^
     Route: 065
  5. OXYCODONE [Concomitant]
     Dosage: ^2DD1^; INCREASED SINCE 18-OCT
     Route: 065
  6. PARACETAMOL [Concomitant]
     Dosage: ^3DD2^
     Route: 065
  7. PREDNISONE [Concomitant]
     Dosage: ^2DD^
     Route: 065
     Dates: start: 20130418
  8. TAMSULOSIN [Concomitant]
     Dosage: ^1DD^
     Route: 065
  9. BISACODYL [Concomitant]
     Dosage: ^1DD2^
     Route: 065
  10. FENPROCOUMON [Concomitant]
     Route: 065
  11. MICROLAX (SODIUM CITRATE, SODIUM LAURYL SULFOACETATE) [Concomitant]
     Dosage: 1DD1-2
     Route: 065
  12. OXYNORM [Concomitant]
     Dosage: ^2-4DD1^
     Route: 065
  13. ZOLADEX [Concomitant]
     Indication: PROSTATE CANCER METASTATIC
     Route: 058
  14. ZOMETA [Concomitant]
     Route: 042
  15. HALDOL [Concomitant]
     Dosage: ^2DD^, SINCE 18-OCT
     Route: 065
     Dates: start: 20131018
  16. CASODEX [Concomitant]
     Indication: PROSTATE CANCER METASTATIC
     Route: 065

REACTIONS (18)
  - Blood pressure increased [Recovered/Resolved]
  - Pyrexia [Recovered/Resolved]
  - Sensory disturbance [Recovered/Resolved]
  - Diarrhoea [Recovered/Resolved]
  - Bilirubin conjugated increased [Recovered/Resolved]
  - Aspartate aminotransferase increased [Recovered/Resolved]
  - Blood lactate dehydrogenase increased [Recovered/Resolved]
  - Blood alkaline phosphatase increased [Recovered/Resolved]
  - Gamma-glutamyltransferase increased [Recovered/Resolved]
  - C-reactive protein increased [Recovered/Resolved]
  - Prostate cancer metastatic [Unknown]
  - Abdominal pain [Recovered/Resolved]
  - Chest pain [Recovered/Resolved]
  - Vomiting [Recovered/Resolved]
  - Haemoglobin decreased [Recovered/Resolved]
  - Tachycardia [Recovered/Resolved]
  - Platelet count decreased [Recovered/Resolved]
  - White blood cell count decreased [Recovered/Resolved]
